FAERS Safety Report 6384226-6 (Version None)
Quarter: 2009Q4

REPORT INFORMATION
  Report Type: 
  Country: None (occurrence: None)
  Receive Date: 20091001
  Receipt Date: 20090925
  Transmission Date: 20100525
  Serious: Yes (Other)
  Sender: FDA-Public Use
  Company Number: B0595188A

PATIENT
  Age: 51 Year
  Sex: Male

DRUGS (1)
  1. CLENIL MODULITE [Suspect]
     Route: 055

REACTIONS (3)
  - BURNING SENSATION [None]
  - HAEMOPTYSIS [None]
  - ORAL DISCOMFORT [None]
